FAERS Safety Report 8925572 (Version 1)
Quarter: 2012Q4

REPORT INFORMATION
  Report Type: 
  Country: US (occurrence: US)
  Receive Date: 20121126
  Receipt Date: 20121126
  Transmission Date: 20130627
  Serious: Yes (Hospitalization)
  Sender: FDA-Public Use
  Company Number: US-BAYER-2012-121875

PATIENT
  Age: 39 Year
  Sex: Female
  Weight: 97 kg

DRUGS (6)
  1. YAZ [Suspect]
  2. YASMIN [Suspect]
  3. OCELLA [Suspect]
  4. AMOXICILLIN [Concomitant]
     Dosage: 500 mg, UNK
     Route: 048
  5. HYDROCODONE W/ACETAMINOPHEN [Concomitant]
     Dosage: 7.5 /750 mg
     Route: 048
  6. ADVIL [Concomitant]
     Route: 048

REACTIONS (1)
  - Deep vein thrombosis [None]
